FAERS Safety Report 10131328 (Version 1)
Quarter: 2014Q2

REPORT INFORMATION
  Report Type: Spontaneous
  Country: GB (occurrence: GB)
  Receive Date: 20140428
  Receipt Date: 20140428
  Transmission Date: 20141212
  Serious: Yes (Other)
  Sender: FDA-Public Use
  Company Number: GB-TEVA-477397ISR

PATIENT
  Age: 63 Year
  Sex: Female

DRUGS (5)
  1. SIMVASTATIN [Suspect]
  2. BECLOMETASONE [Concomitant]
  3. BENDROFLUMETHIAZIDE [Concomitant]
  4. FLUOXETINE [Concomitant]
  5. LISINOPRIL [Concomitant]

REACTIONS (2)
  - Systemic lupus erythematosus rash [Recovered/Resolved]
  - Rash pruritic [Recovered/Resolved]
